FAERS Safety Report 6450864-5 (Version None)
Quarter: 2009Q4

REPORT INFORMATION
  Report Type: 
  Country: None (occurrence: None)
  Receive Date: 20091123
  Receipt Date: 20091030
  Transmission Date: 20100525
  Serious: Yes (Other)
  Sender: FDA-Public Use
  Company Number: US-AMGEN-QUU372181

PATIENT
  Sex: Male

DRUGS (4)
  1. ENBREL [Suspect]
     Indication: PSORIASIS
  2. VICODIN [Concomitant]
  3. DIOVAN [Concomitant]
  4. MULTI-VITAMINS [Concomitant]

REACTIONS (2)
  - LUNG ABSCESS [None]
  - MYOCARDIAL INFARCTION [None]
